FAERS Safety Report 16850478 (Version 1)
Quarter: 2019Q3

REPORT INFORMATION
  Report Type: Spontaneous
  Country: DE (occurrence: DE)
  Receive Date: 20190925
  Receipt Date: 20190925
  Transmission Date: 20191005
  Serious: Yes (Other)
  Sender: FDA-Public Use
  Company Number: DE-PFIZER INC-2019406848

PATIENT
  Age: 39 Year
  Sex: Female
  Weight: 78 kg

DRUGS (2)
  1. QUETIAPINE. [Suspect]
     Active Substance: QUETIAPINE
     Indication: BIPOLAR DISORDER
     Dosage: 400 [MG/D (200-0-200) ] 2 SEPARATED DOSES, 0. - 38.6. GESTATIONAL WEEK
     Route: 048
     Dates: start: 20180322, end: 20181219
  2. SERTRALINE HCL [Suspect]
     Active Substance: SERTRALINE HYDROCHLORIDE
     Indication: BIPOLAR DISORDER
     Dosage: 100 [MG/D (UNTIL 50), 0. - 38.6. GESTATIONAL WEEK ]
     Route: 048
     Dates: start: 20180322, end: 20181219

REACTIONS (3)
  - Amniotic fluid volume increased [Recovered/Resolved]
  - Exposure during pregnancy [Unknown]
  - Gestational diabetes [Recovered/Resolved]

NARRATIVE: CASE EVENT DATE: 2018
